FAERS Safety Report 25142465 (Version 1)
Quarter: 2025Q1

REPORT INFORMATION
  Report Type: Spontaneous
  Country: US (occurrence: US)
  Receive Date: 20250331
  Receipt Date: 20250331
  Transmission Date: 20250409
  Serious: No
  Sender: EVOLUS, INC.
  Company Number: US-Evolus, Inc.-2025EV000018

PATIENT
  Age: 54 Year
  Sex: Female

DRUGS (1)
  1. JEUVEAU [Suspect]
     Active Substance: PRABOTULINUMTOXINA-XVFS
     Indication: Product use in unapproved indication
     Dates: start: 20250101, end: 20250101

REACTIONS (3)
  - Eyelid irritation [Unknown]
  - Paraesthesia [Unknown]
  - Off label use [Unknown]
